FAERS Safety Report 8087727-8 (Version None)
Quarter: 2012Q1

REPORT INFORMATION
  Report Type: 
  Country: None (occurrence: None)
  Receive Date: 20120128
  Receipt Date: 20110517
  Transmission Date: 20120608
  Serious: No
  Sender: FDA-Public Use
  Company Number: US-ABBOTT-11P-163-0721156-00

PATIENT
  Sex: Male

DRUGS (2)
  1. HUMIRA [Suspect]
     Dosage: SECOND DOSE
     Dates: start: 20110407
  2. HUMIRA [Suspect]
     Indication: PSORIASIS
     Route: 058
     Dates: start: 20110329

REACTIONS (5)
  - PALPITATIONS [None]
  - VOMITING [None]
  - VISUAL IMPAIRMENT [None]
  - FEELING JITTERY [None]
  - SPEECH DISORDER [None]
